FAERS Safety Report 12770922 (Version 2)
Quarter: 2016Q4

REPORT INFORMATION
  Report Type: Spontaneous
  Country: US (occurrence: US)
  Receive Date: 20160922
  Receipt Date: 20161018
  Transmission Date: 20170207
  Serious: No
  Sender: FDA-Public Use
  Company Number: US-GLAXOSMITHKLINE-US2016GSK137607

PATIENT
  Age: 61 Year
  Sex: Female

DRUGS (1)
  1. TANZEUM [Suspect]
     Active Substance: ALBIGLUTIDE
     Indication: TYPE 2 DIABETES MELLITUS
     Dosage: 50 MG, WE
     Route: 042
     Dates: start: 20160911

REACTIONS (5)
  - Injection site swelling [Recovered/Resolved]
  - Product preparation error [Unknown]
  - Device use error [Unknown]
  - Multiple use of single-use product [Unknown]
  - Injection site induration [Recovered/Resolved]

NARRATIVE: CASE EVENT DATE: 20160918
